FAERS Safety Report 5694238-3 (Version None)
Quarter: 2008Q2

REPORT INFORMATION
  Report Type: 
  Country: None (occurrence: None)
  Receive Date: 20080403
  Receipt Date: 20080403
  Transmission Date: 20081010
  Serious: No
  Sender: FDA-Public Use
  Company Number: None

PATIENT
  Age: 63 Year
  Sex: Male
  Weight: 81.6475 kg

DRUGS (2)
  1. MYOBLOC [Suspect]
  2. BOTOX [Suspect]

REACTIONS (3)
  - DYSPHAGIA [None]
  - LARYNGOSCOPY ABNORMAL [None]
  - VOCAL CORD PARESIS [None]
